FAERS Safety Report 12222113 (Version 1)
Quarter: 2016Q1

REPORT INFORMATION
  Report Type: Spontaneous
  Country: RU (occurrence: RU)
  Receive Date: 20160330
  Receipt Date: 20160330
  Transmission Date: 20160526
  Serious: Yes (Hospitalization, Other)
  Sender: FDA-Public Use
  Company Number: RU-PFIZER INC-2016183132

PATIENT
  Age: 60 Year
  Sex: Male

DRUGS (1)
  1. JAQINUS [Suspect]
     Active Substance: TOFACITINIB CITRATE
     Indication: RHEUMATOID ARTHRITIS
     Dosage: 5 MG, 2X/DAY
     Route: 048
     Dates: start: 201509, end: 201603

REACTIONS (4)
  - Herpes virus infection [Unknown]
  - White blood cell count decreased [Unknown]
  - Pneumonia [Unknown]
  - Stomatitis [Unknown]

NARRATIVE: CASE EVENT DATE: 201603
